FAERS Safety Report 6705907-8 (Version None)
Quarter: 2010Q2

REPORT INFORMATION
  Report Type: 
  Country: None (occurrence: None)
  Receive Date: 20100503
  Receipt Date: 20100215
  Transmission Date: 20101027
  Serious: No
  Sender: FDA-Public Use
  Company Number: US-ASTRAZENECA-2010SE05826

PATIENT
  Age: 54 Year
  Sex: Female
  Weight: 82.1 kg

DRUGS (3)
  1. NEXIUM [Suspect]
     Indication: GASTROOESOPHAGEAL REFLUX DISEASE
     Route: 048
     Dates: start: 20040101
  2. LISINOPRIL [Concomitant]
  3. CLONAZEPAM [Concomitant]

REACTIONS (2)
  - ERUCTATION [None]
  - NEUROPATHY PERIPHERAL [None]
